FAERS Safety Report 4717965-0 (Version None)
Quarter: 2005Q3

REPORT INFORMATION
  Report Type: 
  Country: None (occurrence: None)
  Receive Date: 20050719
  Receipt Date: 20050312
  Transmission Date: 20060218
  Serious: Yes (Hospitalization, Other)
  Sender: FDA-Public Use
  Company Number: 2005023648

PATIENT
  Age: 66 Year
  Sex: Male

DRUGS (5)
  1. CELEBREX [Suspect]
     Indication: BLADDER CANCER
     Dosage: 200 MG (200 MG, 1 IN 1 D), UNKNOWN
     Route: 065
     Dates: start: 20031010
  2. TOLTERODINE TARTRATE [Concomitant]
  3. TERAZOSIN HYDROCHLORIDE [Concomitant]
  4. VERAPAMIL [Concomitant]
  5. PHENYTOIN SODIUM [Concomitant]

REACTIONS (1)
  - CEREBROVASCULAR ACCIDENT [None]
